FAERS Safety Report 20097030 (Version 1)
Quarter: 2021Q4

REPORT INFORMATION
  Report Type: Spontaneous
  Country: AT (occurrence: None)
  Receive Date: 20211122
  Receipt Date: 20211122
  Transmission Date: 20220303
  Serious: Yes (Other)
  Sender: FDA-Public Use
  Company Number: 2021A811555

PATIENT
  Age: 68 Year
  Sex: Male

DRUGS (4)
  1. IMFINZI [Suspect]
     Active Substance: DURVALUMAB
     Indication: Small cell lung cancer
     Route: 042
     Dates: start: 20210225, end: 2021
  2. IMFINZI [Suspect]
     Active Substance: DURVALUMAB
     Indication: Small cell lung cancer
     Route: 042
     Dates: start: 20210601, end: 202108
  3. CISPLATIN [Concomitant]
     Active Substance: CISPLATIN
     Dosage: BSA D1
  4. ETOPOSIDE [Concomitant]
     Active Substance: ETOPOSIDE
     Dosage: D1-D3

REACTIONS (4)
  - Malignant neoplasm progression [Unknown]
  - Neutropenia [Unknown]
  - Chest pain [Unknown]
  - Abnormal loss of weight [Unknown]

NARRATIVE: CASE EVENT DATE: 20210801
